FAERS Safety Report 8547901-0 (Version None)
Quarter: 2012Q3

REPORT INFORMATION
  Report Type: 
  Country: None (occurrence: None)
  Receive Date: 20120728
  Receipt Date: 20101216
  Transmission Date: 20120928
  Serious: Yes (Hospitalization, Other)
  Sender: FDA-Public Use
  Company Number: US-BAYER-201037655NA

PATIENT
  Age: 44 Year
  Sex: Female
  Weight: 92.971 kg

DRUGS (7)
  1. YAZ [Suspect]
     Indication: PRODUCT USED FOR UNKNOWN INDICATION
  2. NSAID'S [Concomitant]
  3. YASMIN [Suspect]
     Indication: CONTRACEPTION
  4. LISINOPRIL [Concomitant]
  5. DIET MEDICATION [Concomitant]
  6. DROSPIRENONE AND ETHINYL ESTRADIOL [Suspect]
     Indication: PRODUCT USED FOR UNKNOWN INDICATION
  7. YASMIN [Suspect]
     Indication: MENSTRUAL CYCLE MANAGEMENT
     Dosage: UNK
     Dates: start: 20030101, end: 20060101

REACTIONS (5)
  - CHOLELITHIASIS [None]
  - VOMITING [None]
  - NAUSEA [None]
  - ABDOMINAL PAIN UPPER [None]
  - CHOLECYSTITIS ACUTE [None]
